FAERS Safety Report 9945307 (Version 1)
Quarter: 2014Q1

REPORT INFORMATION
  Report Type: Report from Study
  Country: US (occurrence: US)
  Receive Date: 20140303
  Receipt Date: 20140303
  Transmission Date: 20141002
  Serious: No
  Sender: FDA-Public Use
  Company Number: US-ABBVIE-13P-163-1054620-00

PATIENT
  Age: 10 Year
  Sex: Male
  Weight: 29.6 kg

DRUGS (7)
  1. HUMIRA [Suspect]
     Indication: CROHN^S DISEASE
     Route: 058
     Dates: start: 20130124, end: 20130125
  2. HUMIRA [Suspect]
     Route: 058
     Dates: start: 20130125, end: 20130125
  3. HUMIRA [Suspect]
     Route: 058
     Dates: start: 20130215, end: 20130215
  4. 6-MP [Concomitant]
     Indication: CROHN^S DISEASE
  5. 6-MP [Concomitant]
     Dates: start: 201302
  6. PREVACID [Concomitant]
     Indication: PRODUCT USED FOR UNKNOWN INDICATION
     Route: 048
  7. FLAGYL [Concomitant]
     Indication: PRODUCT USED FOR UNKNOWN INDICATION
     Route: 048

REACTIONS (2)
  - Pruritus [Recovering/Resolving]
  - Rash generalised [Recovering/Resolving]
